FAERS Safety Report 7578449-8 (Version None)
Quarter: 2011Q2

REPORT INFORMATION
  Report Type: 
  Country: None (occurrence: None)
  Receive Date: 20110628
  Receipt Date: 20110624
  Transmission Date: 20111010
  Serious: Yes (Hospitalization, Other)
  Sender: FDA-Public Use
  Company Number: BR-ABBOTT-11P-020-0734925-00

PATIENT
  Sex: Female
  Weight: 66 kg

DRUGS (6)
  1. ACETAMINOPHEN [Concomitant]
     Indication: PYREXIA
  2. VITAMIN D2 200 UI + CALCIUM 600 MG [Concomitant]
     Indication: OSTEOPOROSIS PROPHYLAXIS
     Dosage: 1 PER DAY
     Route: 048
  3. ACETAMINOPHEN [Concomitant]
     Indication: HEADACHE
     Route: 048
  4. HUMIRA [Suspect]
     Indication: CROHN'S DISEASE
     Dates: start: 20110509
  5. AZATHIOPRINE [Suspect]
     Indication: PRODUCT USED FOR UNKNOWN INDICATION
     Route: 048
  6. UNIQUCID [Suspect]
     Indication: PRODUCT USED FOR UNKNOWN INDICATION
     Route: 065

REACTIONS (8)
  - VOMITING [None]
  - PYREXIA [None]
  - ANAEMIA [None]
  - ALOPECIA [None]
  - HEADACHE [None]
  - VIRAL INFECTION [None]
  - DIARRHOEA [None]
  - ABDOMINAL PAIN [None]
